FAERS Safety Report 13134476 (Version 1)
Quarter: 2017Q1

REPORT INFORMATION
  Report Type: Spontaneous
  Country: DK (occurrence: DK)
  Receive Date: 20170120
  Receipt Date: 20170120
  Transmission Date: 20170428
  Serious: Yes (Hospitalization)
  Sender: FDA-Public Use
  Company Number: DK-BIOVITRUM-2017DK0033

PATIENT
  Age: 37 Year
  Sex: Male
  Weight: 100 kg

DRUGS (4)
  1. PREDNISOLONE. [Concomitant]
     Active Substance: PREDNISOLONE
  2. KINERET [Suspect]
     Active Substance: ANAKINRA
     Dates: start: 20130308, end: 20160127
  3. KINERET [Suspect]
     Active Substance: ANAKINRA
     Dates: start: 20160128
  4. KINERET [Suspect]
     Active Substance: ANAKINRA
     Indication: FAMILIAL MEDITERRANEAN FEVER
     Dates: start: 20110923

REACTIONS (2)
  - Arthritis [Unknown]
  - Off label use [Recovered/Resolved]
